FAERS Safety Report 20612768 (Version 14)
Quarter: 2022Q3

REPORT INFORMATION
  Report Type: Report from Study
  Country: AU (occurrence: None)
  Receive Date: 20220318
  Receipt Date: 20220920
  Transmission Date: 20221027
  Serious: Yes (Hospitalization, Other)
  Sender: FDA-Public Use
  Company Number: AU-Eisai Medical Research-EC-2022-110749

PATIENT
  Age: 60 Year
  Sex: Male
  Weight: 83.9 kg

DRUGS (7)
  1. LENVATINIB [Suspect]
     Active Substance: LENVATINIB
     Indication: Renal cell carcinoma
     Route: 048
     Dates: start: 20220210, end: 20220310
  2. PEMBROLIZUMAB [Suspect]
     Active Substance: PEMBROLIZUMAB
     Indication: Renal cell carcinoma
     Route: 041
     Dates: start: 20220210, end: 20220210
  3. METOPROLOL [Concomitant]
     Active Substance: METOPROLOL
     Dates: start: 200201, end: 20220314
  4. METOPROLOL [Concomitant]
     Active Substance: METOPROLOL
     Dates: start: 200201, end: 20220313
  5. AMPHETAMINE [Concomitant]
     Active Substance: AMPHETAMINE
     Dates: start: 200201, end: 20220312
  6. CLONAZEPAM [Concomitant]
     Active Substance: CLONAZEPAM
     Dates: start: 200201
  7. LYRICA [Concomitant]
     Active Substance: PREGABALIN
     Dates: start: 202104

REACTIONS (3)
  - Hyperthyroidism [Recovered/Resolved]
  - Atrial fibrillation [Recovered/Resolved]
  - Acute myocardial infarction [Recovered/Resolved]

NARRATIVE: CASE EVENT DATE: 20220310
